FAERS Safety Report 21244432 (Version 7)
Quarter: 2023Q4

REPORT INFORMATION
  Report Type: Report from Study
  Country: JP (occurrence: JP)
  Receive Date: 20220823
  Receipt Date: 20231005
  Transmission Date: 20240110
  Serious: Yes (Death, Other)
  Sender: FDA-Public Use
  Company Number: JP-BRISTOL-MYERS SQUIBB COMPANY-2022-092768

PATIENT
  Age: 54 Year
  Sex: Male
  Weight: 71 kg

DRUGS (4)
  1. BREYANZI [Suspect]
     Active Substance: LISOCABTAGENE MARALEUCEL
     Indication: Diffuse large B-cell lymphoma
     Dosage: CD4 POSITIVE LYMPHOCYTES: 5 X 10^7, CD8 POSITIVE LYMPHOCYTES: 5 X 10^7)
     Route: 042
     Dates: start: 20220516, end: 20220516
  2. BREYANZI [Suspect]
     Active Substance: LISOCABTAGENE MARALEUCEL
     Indication: Non-Hodgkin^s lymphoma
  3. FLUDARABINE [Concomitant]
     Active Substance: FLUDARABINE PHOSPHATE
     Indication: Non-Hodgkin^s lymphoma
     Dates: start: 20220512
  4. CYCLOPHOSPHAMIDE [Concomitant]
     Active Substance: CYCLOPHOSPHAMIDE
     Indication: Non-Hodgkin^s lymphoma
     Dates: start: 20220512

REACTIONS (5)
  - Graft versus host disease in gastrointestinal tract [Fatal]
  - Thrombotic microangiopathy [Fatal]
  - Aspergillus infection [Unknown]
  - Enterobacter bacteraemia [Unknown]
  - Bacteroides bacteraemia [Unknown]

NARRATIVE: CASE EVENT DATE: 20220610
